FAERS Safety Report 12263809 (Version 1)
Quarter: 2016Q2

REPORT INFORMATION
  Report Type: Spontaneous
  Country: US (occurrence: US)
  Receive Date: 20160413
  Receipt Date: 20160413
  Transmission Date: 20160815
  Serious: No
  Sender: FDA-Public Use
  Company Number: US-JNJFOC-20160312944

PATIENT
  Age: 13 Year
  Sex: Female
  Weight: 38.1 kg

DRUGS (1)
  1. CHILDRENS SUDAFED NASAL DECONGESTANT [Suspect]
     Active Substance: PSEUDOEPHEDRINE HYDROCHLORIDE
     Indication: SINUS CONGESTION
     Dosage: 2 TEASPOONS USING THE DOSING CUP
     Route: 048

REACTIONS (2)
  - Product packaging issue [Unknown]
  - Drug administered to patient of inappropriate age [Unknown]
